FAERS Safety Report 5193060-4 (Version None)
Quarter: 2006Q4

REPORT INFORMATION
  Report Type: 
  Country: None (occurrence: None)
  Receive Date: 20061228
  Receipt Date: 20060329
  Transmission Date: 20070319
  Serious: No
  Sender: FDA-Public Use
  Company Number: US-GLAXOSMITHKLINE-A0599534A

PATIENT
  Age: 69 Year
  Sex: Male

DRUGS (8)
  1. AVODART [Suspect]
     Indication: BENIGN PROSTATIC HYPERPLASIA
     Dosage: .5MG PER DAY
     Route: 048
     Dates: start: 20051201
  2. LEVALL [Concomitant]
  3. LOPRESSOR [Concomitant]
  4. ALDACTONE [Concomitant]
  5. FLOMAX [Concomitant]
  6. GLUCOSAMINE [Concomitant]
  7. MAGNESIUM OXIDE [Concomitant]
  8. OSCAL D [Concomitant]

REACTIONS (2)
  - DRUG ADMINISTRATION ERROR [None]
  - DRUG INEFFECTIVE [None]
